FAERS Safety Report 15518221 (Version 2)
Quarter: 2018Q4

REPORT INFORMATION
  Report Type: Spontaneous
  Country: BE (occurrence: BE)
  Receive Date: 20181017
  Receipt Date: 20181030
  Transmission Date: 20190205
  Serious: Yes (Death)
  Sender: FDA-Public Use
  Company Number: BE-PFIZER INC-2018420056

PATIENT
  Age: 75 Year
  Sex: Female
  Weight: 60 kg

DRUGS (7)
  1. FLIXOTIDE [Concomitant]
     Active Substance: FLUTICASONE PROPIONATE
     Dosage: 1 DF, 1X/DAY (50 MCG)
     Route: 055
  2. CLAVUCID [AMOXICILLIN TRIHYDRATE;CLAVULANIC ACID] [Concomitant]
     Indication: COUGH
  3. FASLODEX [Suspect]
     Active Substance: FULVESTRANT
     Indication: BREAST CANCER
     Dosage: 500 MG, MONTHLY; FIRST MONTH 1X/2WEEKS
     Route: 030
     Dates: start: 20180411
  4. AMLOR [Concomitant]
     Active Substance: AMLODIPINE BESYLATE
     Dosage: 5 MG, 1X/DAY
     Route: 048
  5. DUOVENT [Concomitant]
     Active Substance: FENOTEROL HYDROBROMIDE
     Dosage: 1 DF, EVERY 4 DAYS
     Route: 055
  6. IBRANCE [Suspect]
     Active Substance: PALBOCICLIB
     Indication: BREAST CANCER
     Dosage: 125 MG, 1X/DAY (3 WEEKS 1/DAY + 1 WEEKS NO ADMINISTRATION)
     Route: 048
     Dates: start: 20180411
  7. CLAVUCID [AMOXICILLIN TRIHYDRATE;CLAVULANIC ACID] [Concomitant]
     Indication: DYSPNOEA
     Dosage: 1 DF, EVERY 3 DAYS, 875MG/125MG
     Route: 048
     Dates: start: 20180814, end: 20180830

REACTIONS (2)
  - Respiratory failure [Fatal]
  - Interstitial lung disease [Fatal]

NARRATIVE: CASE EVENT DATE: 20180831
